FAERS Safety Report 4927723-X (Version None)
Quarter: 2006Q1

REPORT INFORMATION
  Report Type: 
  Country: None (occurrence: None)
  Receive Date: 20060222
  Receipt Date: 20060210
  Transmission Date: 20060701
  Serious: No
  Sender: FDA-Public Use
  Company Number: C06-017

PATIENT
  Age: 35 Year
  Sex: Female

DRUGS (1)
  1. PHENTERMINE TABLETS, USP 37.5 MG [Suspect]
     Indication: OBESITY
     Dosage: 1 TABLET IN THE MORNING
     Dates: start: 20060206, end: 20060210

REACTIONS (2)
  - DRUG INEFFECTIVE [None]
  - FLATULENCE [None]
